FAERS Safety Report 8439585-7 (Version None)
Quarter: 2012Q2

REPORT INFORMATION
  Report Type: 
  Country: None (occurrence: None)
  Receive Date: 20120615
  Receipt Date: 20120606
  Transmission Date: 20120825
  Serious: Yes (Life-Threatening)
  Sender: FDA-Public Use
  Company Number: SI-JNJFOC-20120604555

PATIENT
  Age: 54 Year
  Sex: Male
  Weight: 90 kg

DRUGS (6)
  1. REMICADE [Suspect]
     Indication: RHEUMATOID ARTHRITIS
     Route: 042
     Dates: start: 20111011
  2. REMICADE [Suspect]
     Route: 042
     Dates: start: 20111208
  3. FOLIC ACID [Concomitant]
     Route: 065
  4. METHOTREXATE [Concomitant]
     Route: 065
  5. ALFACALCIDOL [Concomitant]
     Route: 065
  6. CALCIUM CARBONATE [Concomitant]
     Route: 065

REACTIONS (1)
  - BLOOD DISORDER [None]
